FAERS Safety Report 17004303 (Version 2)
Quarter: 2019Q4

REPORT INFORMATION
  Report Type: Spontaneous
  Country: US (occurrence: US)
  Receive Date: 20191107
  Receipt Date: 20191121
  Transmission Date: 20200122
  Serious: No
  Sender: FDA-Public Use
  Company Number: US-CELGENEUS-USA-20191011827

PATIENT
  Age: 63 Year
  Sex: Female

DRUGS (4)
  1. CALCIPUVENEINE [Concomitant]
     Indication: PSORIASIS
     Dosage: WEEKDAYS
     Route: 065
     Dates: start: 201609
  2. OTEZLA [Suspect]
     Active Substance: APREMILAST
     Dosage: 60 MILLIGRAM
     Route: 048
     Dates: start: 201710
  3. OTEZLA [Suspect]
     Active Substance: APREMILAST
     Indication: PSORIASIS
     Dosage: 60 MILLIGRAM
     Route: 048
     Dates: start: 20160926
  4. CLOBETASOL [Concomitant]
     Active Substance: CLOBETASOL
     Indication: PSORIASIS
     Dosage: WEEKENDS
     Route: 065
     Dates: start: 201810

REACTIONS (4)
  - Product dose omission [Unknown]
  - Psoriasis [Unknown]
  - Limb mass [Unknown]
  - Gait disturbance [Unknown]

NARRATIVE: CASE EVENT DATE: 201910
